FAERS Safety Report 7976320-0 (Version None)
Quarter: 2011Q4

REPORT INFORMATION
  Report Type: 
  Country: None (occurrence: None)
  Receive Date: 20111213
  Receipt Date: 20111017
  Transmission Date: 20120403
  Serious: No
  Sender: FDA-Public Use
  Company Number: US-AMGEN-USASP2011053577

PATIENT
  Age: 57 Year
  Sex: Female

DRUGS (9)
  1. LEXAPRO [Concomitant]
  2. METHOTREXATE [Concomitant]
  3. PREDNISONE TAB [Concomitant]
  4. RITALIN [Concomitant]
  5. ENBREL [Suspect]
     Indication: RHEUMATOID ARTHRITIS
     Dosage: 50 MG, QWK
     Dates: start: 20050101, end: 20110701
  6. FOLIC ACID [Concomitant]
  7. HYDROCODONE [Concomitant]
  8. LAMICTAL [Concomitant]
  9. ATIVAN [Concomitant]

REACTIONS (1)
  - BRONCHITIS [None]
